FAERS Safety Report 21761269 (Version 1)
Quarter: 2022Q4

REPORT INFORMATION
  Report Type: Spontaneous
  Country: US (occurrence: US)
  Receive Date: 20221221
  Receipt Date: 20221221
  Transmission Date: 20230113
  Serious: Yes (Other)
  Sender: FDA-Public Use
  Company Number: US-ABBVIE-4245334

PATIENT
  Age: 67 Year
  Sex: Female

DRUGS (1)
  1. GLECAPREVIR\PIBRENTASVIR [Suspect]
     Active Substance: GLECAPREVIR\PIBRENTASVIR
     Indication: Hepatitis C
     Route: 048

REACTIONS (4)
  - Child-Pugh-Turcotte score abnormal [Unknown]
  - Ascites [Unknown]
  - Blood albumin decreased [Unknown]
  - Hepatocellular carcinoma [Unknown]
